FAERS Safety Report 15955845 (Version 1)
Quarter: 2019Q1

REPORT INFORMATION
  Report Type: Spontaneous
  Country: US (occurrence: US)
  Receive Date: 20190212
  Receipt Date: 20190212
  Transmission Date: 20190417
  Serious: Yes (Hospitalization)
  Sender: FDA-Public Use
  Company Number: None

PATIENT
  Age: 69 Year
  Sex: Male
  Weight: 114.75 kg

DRUGS (18)
  1. MONTELUKAST SODIUM TABLETS 10MG [Suspect]
     Active Substance: MONTELUKAST SODIUM
     Indication: ASTHMA
     Route: 048
  2. HUMALOG [Concomitant]
     Active Substance: INSULIN LISPRO
  3. ASPIRIN. [Concomitant]
     Active Substance: ASPIRIN
  4. MULTIVITAMIN [Concomitant]
     Active Substance: VITAMINS
  5. LEVOTHYROXINE. [Concomitant]
     Active Substance: LEVOTHYROXINE
  6. METOPROLOL. [Concomitant]
     Active Substance: METOPROLOL
  7. PACEMAKER [Concomitant]
  8. TANZIUM [Concomitant]
  9. WARFARIN [Concomitant]
     Active Substance: WARFARIN
  10. MONTELUKAST [Concomitant]
     Active Substance: MONTELUKAST SODIUM
  11. SPIRONOLACTONE. [Concomitant]
     Active Substance: SPIRONOLACTONE
  12. GABAPENTIN. [Concomitant]
     Active Substance: GABAPENTIN
  13. METOLAZONE. [Concomitant]
     Active Substance: METOLAZONE
  14. BASAGLAR [Concomitant]
     Active Substance: INSULIN GLARGINE
  15. TORSEMIDE. [Concomitant]
     Active Substance: TORSEMIDE
  16. ULORIC [Concomitant]
     Active Substance: FEBUXOSTAT
  17. VITAMIN B12 [Concomitant]
     Active Substance: CYANOCOBALAMIN
  18. ATORVASTATIN [Concomitant]
     Active Substance: ATORVASTATIN

REACTIONS (11)
  - Hypotension [None]
  - Recalled product administered [None]
  - Asthenia [None]
  - Lower limb fracture [None]
  - Dyspnoea [None]
  - Product dispensing error [None]
  - Fall [None]
  - Chromaturia [None]
  - Gait disturbance [None]
  - Renal impairment [None]
  - Dyspnoea exertional [None]

NARRATIVE: CASE EVENT DATE: 20180901
